FAERS Safety Report 8535746 (Version 3)
Quarter: 2013Q1

REPORT INFORMATION
  Report Type: Spontaneous
  Country: US (occurrence: US)
  Receive Date: 20120430
  Receipt Date: 20121218
  Transmission Date: 20140127
  Serious: Yes (Other)
  Sender: FDA-Public Use
  Company Number: PHEH2012US008546

PATIENT
  Sex: Female

DRUGS (1)
  1. ZOMETA (ZOLEDRONATE) UNKNOWN [Suspect]
     Indication: BREAST CANCER
     Route: 042
     Dates: start: 20071101, end: 20100802

REACTIONS (1)
  - Osteonecrosis of jaw [Not Recovered/Not Resolved]
